FAERS Safety Report 7469121-3 (Version None)
Quarter: 2011Q2

REPORT INFORMATION
  Report Type: 
  Country: None (occurrence: None)
  Receive Date: 20110510
  Receipt Date: 20110426
  Transmission Date: 20111010
  Serious: Yes (Other)
  Sender: FDA-Public Use
  Company Number: CA-ELI_LILLY_AND_COMPANY-CA201104007142

PATIENT
  Sex: Female
  Weight: 127.2 kg

DRUGS (4)
  1. DEPO-PROVERA [Concomitant]
  2. LITHIUM [Concomitant]
  3. ZYPREXA [Suspect]
     Dosage: 5 MG, EACH EVENING
     Dates: start: 20020919
  4. VALPROIC ACID [Concomitant]

REACTIONS (15)
  - INGROWING NAIL [None]
  - CONGENITAL CYSTIC KIDNEY DISEASE [None]
  - HYPOTHYROIDISM [None]
  - PAIN IN EXTREMITY [None]
  - INTERMITTENT CLAUDICATION [None]
  - DIABETES MELLITUS [None]
  - DIABETIC NEPHROPATHY [None]
  - HAEMORRHAGIC CYST [None]
  - HYPERTENSION [None]
  - DYSLIPIDAEMIA [None]
  - RENAL FAILURE [None]
  - VISUAL ACUITY REDUCED [None]
  - WEIGHT INCREASED [None]
  - HEPATIC STEATOSIS [None]
  - MACROCYTOSIS [None]
